FAERS Safety Report 9313194 (Version 1)
Quarter: 2013Q2

REPORT INFORMATION
  Report Type: Report from Study
  Country: US (occurrence: US)
  Receive Date: 20130528
  Receipt Date: 20130528
  Transmission Date: 20140414
  Serious: No
  Sender: FDA-Public Use
  Company Number: US-ABBOTT-13P-163-1059605-00

PATIENT
  Age: 52 Year
  Sex: Male

DRUGS (2)
  1. ANDROGEL [Suspect]
     Indication: BLOOD TESTOSTERONE DECREASED
     Dosage: 4 PUMPS - 2 PUMPS PER SIDE
     Dates: start: 20120201, end: 20130301
  2. ANDROGEL [Suspect]
     Indication: HYPOTHYROIDISM

REACTIONS (2)
  - Drug dose omission [Unknown]
  - Asthenia [Not Recovered/Not Resolved]
